FAERS Safety Report 4687053-0 (Version None)
Quarter: 2005Q2

REPORT INFORMATION
  Report Type: 
  Country: None (occurrence: None)
  Receive Date: 20050608
  Receipt Date: 20050530
  Transmission Date: 20051028
  Serious: Yes (Hospitalization)
  Sender: FDA-Public Use
  Company Number: 2004EU002262

PATIENT
  Age: 53 Year
  Sex: Male
  Weight: 62 kg

DRUGS (7)
  1. PROGRAF [Suspect]
     Indication: LIVER TRANSPLANT
     Dosage: 3.00 MG, BID, ORAL
     Route: 048
     Dates: start: 20040804, end: 20041125
  2. PROGRAF [Suspect]
     Indication: LIVER TRANSPLANT
     Dosage: 3.00 MG, BID, ORAL
     Route: 048
     Dates: start: 20041125, end: 20041128
  3. CELLCEPT [Suspect]
     Indication: LIVER TRANSPLANT
     Dosage: 1.00 G, BID, IV NOS
     Route: 042
     Dates: start: 20041125, end: 20041127
  4. MIDAZOLAM HCL [Suspect]
     Dosage: D, IV NOS
     Route: 042
     Dates: start: 20041125, end: 20041128
  5. SOLU-MEDROL [Concomitant]
  6. OFLOCET (OFLOXACIN) [Concomitant]
  7. FENTANYL [Concomitant]

REACTIONS (7)
  - CONFUSIONAL STATE [None]
  - CONVULSION [None]
  - DISORIENTATION [None]
  - DRUG INTERACTION [None]
  - DRUG LEVEL INCREASED [None]
  - HALLUCINATION [None]
  - PARANEOPLASTIC SYNDROME [None]
